FAERS Safety Report 24544002 (Version 7)
Quarter: 2025Q4

REPORT INFORMATION
  Report Type: Spontaneous
  Country: US (occurrence: None)
  Receive Date: 20241024
  Receipt Date: 20251126
  Transmission Date: 20260117
  Serious: Yes (Other)
  Sender: UCB
  Company Number: US-UCBSA-2024052427

PATIENT

DRUGS (1)
  1. ZILBRYSQ [Suspect]
     Active Substance: ZILUCOPLAN
     Indication: Product used for unknown indication
     Dosage: UNK (32.4MG/0.81ML)

REACTIONS (3)
  - Urinary tract infection [Recovered/Resolved]
  - Blood glucose increased [Recovered/Resolved]
  - Device issue [Unknown]
